FAERS Safety Report 24341265 (Version 1)
Quarter: 2024Q3

REPORT INFORMATION
  Report Type: Report from Study
  Country: US (occurrence: US)
  Receive Date: 20240919
  Receipt Date: 20240919
  Transmission Date: 20241017
  Serious: Yes (Other)
  Sender: BIOGEN
  Company Number: US-BIOGEN-2024BI01282548

PATIENT
  Sex: Female

DRUGS (1)
  1. TYSABRI [Suspect]
     Active Substance: NATALIZUMAB
     Indication: Multiple sclerosis
     Route: 050
     Dates: start: 20211206, end: 20240716

REACTIONS (2)
  - Breast cancer female [Unknown]
  - Post procedural complication circulatory [Not Recovered/Not Resolved]

NARRATIVE: CASE EVENT DATE: 20240101
